FAERS Safety Report 6213946-9 (Version None)
Quarter: 2009Q2

REPORT INFORMATION
  Report Type: 
  Country: None (occurrence: None)
  Receive Date: 20090602
  Receipt Date: 20090526
  Transmission Date: 20091009
  Serious: Yes (Death)
  Sender: FDA-Public Use
  Company Number: CHNY2009GB02174

PATIENT

DRUGS (2)
  1. NICOTINELL GUM        (NICOTINE) CHEWABLE GUM [Suspect]
  2. NICOTINE [Suspect]

REACTIONS (1)
  - DRUG EFFECT DECREASED [None]
